FAERS Safety Report 23162472 (Version 3)
Quarter: 2024Q1

REPORT INFORMATION
  Report Type: Report from Study
  Country: US (occurrence: US)
  Receive Date: 20231109
  Receipt Date: 20240108
  Transmission Date: 20240409
  Serious: Yes (Other)
  Sender: FDA-Public Use
  Company Number: US-ABBVIE-5485454

PATIENT
  Sex: Female

DRUGS (1)
  1. RINVOQ [Suspect]
     Active Substance: UPADACITINIB
     Indication: Rheumatoid arthritis
     Route: 048
     Dates: start: 20230130

REACTIONS (4)
  - Neck surgery [Recovering/Resolving]
  - COVID-19 [Not Recovered/Not Resolved]
  - Device issue [Unknown]
  - Medical device implantation [Unknown]

NARRATIVE: CASE EVENT DATE: 20230101
